FAERS Safety Report 20913823 (Version 2)
Quarter: 2022Q2

REPORT INFORMATION
  Report Type: Spontaneous
  Country: US (occurrence: US)
  Receive Date: 20220604
  Receipt Date: 20220618
  Transmission Date: 20220721
  Serious: Yes (Other)
  Sender: FDA-Public Use
  Company Number: US-TEVA-2022-US-2042684

PATIENT
  Age: 82 Year

DRUGS (1)
  1. AIRDUO RESPICLICK [Suspect]
     Active Substance: FLUTICASONE PROPIONATE\SALMETEROL XINAFOATE
     Dosage: 232/14MG
     Route: 055

REACTIONS (5)
  - Haemorrhage [Recovered/Resolved]
  - Anaphylactic reaction [Recovered/Resolved]
  - Diarrhoea [Recovered/Resolved]
  - Milk allergy [Unknown]
  - Dyspnoea [Unknown]

NARRATIVE: CASE EVENT DATE: 20220525
